FAERS Safety Report 16113569 (Version 1)
Quarter: 2019Q1

REPORT INFORMATION
  Report Type: Spontaneous
  Country: US (occurrence: US)
  Receive Date: 20190325
  Receipt Date: 20190325
  Transmission Date: 20190418
  Serious: No
  Sender: FDA-Public Use
  Company Number: US-ALLERGAN-1845042US

PATIENT
  Age: 60 Year
  Sex: Female

DRUGS (2)
  1. LATISSE [Suspect]
     Active Substance: BIMATOPROST
     Indication: PRODUCT USED FOR UNKNOWN INDICATION
     Dosage: 2 GTT, QHS
     Route: 061
     Dates: start: 2016
  2. MASCARA [Concomitant]
     Dosage: UNK

REACTIONS (1)
  - Eyelids pruritus [Recovered/Resolved]

NARRATIVE: CASE EVENT DATE: 2016
